FAERS Safety Report 6795553-2 (Version None)
Quarter: 2010Q2

REPORT INFORMATION
  Report Type: 
  Country: None (occurrence: None)
  Receive Date: 20100622
  Receipt Date: 20100610
  Transmission Date: 20101027
  Serious: Yes (Hospitalization)
  Sender: FDA-Public Use
  Company Number: LEO-2010-00531

PATIENT
  Age: 65 Year
  Sex: Female

DRUGS (6)
  1. INNOHEP [Suspect]
     Indication: ATRIAL FIBRILLATION
     Dosage: 14000 IU, SUBCUTANEOUS
     Route: 058
     Dates: start: 20100528, end: 20100601
  2. PREVISCAN (FLUINDIONE) (20 MILLIGRAM, TABLETS) [Suspect]
     Indication: ATRIAL FIBRILLATION
     Dosage: ORAL
     Route: 048
  3. AMLOR (AMLODIINE BESILATE) [Concomitant]
  4. PRETERAX (INDAPAMIDE, PERINDOPRIL ERBUMINE) [Concomitant]
  5. HEMIGOXIN (DIGOXIN) [Concomitant]
  6. ASPIRIN [Concomitant]

REACTIONS (16)
  - ATRIAL FIBRILLATION [None]
  - BRAIN OEDEMA [None]
  - CEREBROVASCULAR ACCIDENT [None]
  - DERMATITIS [None]
  - DISTURBANCE IN ATTENTION [None]
  - EXTRADURAL HAEMATOMA [None]
  - GLYCOSYLATED HAEMOGLOBIN INCREASED [None]
  - HEART SOUNDS ABNORMAL [None]
  - HEPATOMEGALY [None]
  - INTERNATIONAL NORMALISED RATIO INCREASED [None]
  - OFF LABEL USE [None]
  - OVERDOSE [None]
  - SOMNOLENCE [None]
  - SUBDURAL HAEMATOMA [None]
  - TREATMENT NONCOMPLIANCE [None]
  - WHITE BLOOD CELL COUNT INCREASED [None]
